FAERS Safety Report 15913341 (Version 1)
Quarter: 2019Q1

REPORT INFORMATION
  Report Type: Spontaneous
  Country: FR (occurrence: FR)
  Receive Date: 20190204
  Receipt Date: 20190204
  Transmission Date: 20190417
  Serious: Yes (Other)
  Sender: FDA-Public Use
  Company Number: FR-B.I. PHARMACEUTICALS,INC./RIDGEFIELD-2019-12-000391

PATIENT
  Age: 94 Year
  Sex: Female
  Weight: 60 kg

DRUGS (2)
  1. CATAPRESSAN [Suspect]
     Active Substance: CLONIDINE
     Indication: PRODUCT ADMINISTRATION ERROR
     Dosage: ; IN TOTAL,
     Route: 048
     Dates: start: 20180724, end: 20180724
  2. BISOCE [Suspect]
     Active Substance: BISOPROLOL
     Indication: PRODUCT ADMINISTRATION ERROR
     Dosage: ; IN TOTAL,
     Route: 048
     Dates: start: 20180724, end: 20180724

REACTIONS (2)
  - Bradycardia [Recovered/Resolved]
  - Atrioventricular block first degree [Recovered/Resolved]

NARRATIVE: CASE EVENT DATE: 20180724
